FAERS Safety Report 13039282 (Version 1)
Quarter: 2016Q4

REPORT INFORMATION
  Report Type: Spontaneous
  Country: US (occurrence: US)
  Receive Date: 20161216
  Receipt Date: 20161216
  Transmission Date: 20170207
  Serious: No
  Sender: FDA-Public Use
  Company Number: None

PATIENT
  Age: 88 Year
  Sex: Male
  Weight: 58.95 kg

DRUGS (1)
  1. ATIVAN [Suspect]
     Active Substance: LORAZEPAM
     Dosage: ?          OTHER FREQUENCY:Q4H PRN ANXIETY;?
     Route: 042
     Dates: start: 20161101, end: 20161102

REACTIONS (1)
  - Sedation [None]

NARRATIVE: CASE EVENT DATE: 20161102
